FAERS Safety Report 8321316-2 (Version None)
Quarter: 2012Q2

REPORT INFORMATION
  Report Type: 
  Country: None (occurrence: None)
  Receive Date: 20120430
  Receipt Date: 20120418
  Transmission Date: 20120825
  Serious: Yes (Hospitalization)
  Sender: FDA-Public Use
  Company Number: US-JNJFOC-20120408269

PATIENT
  Sex: Female
  Weight: 51.26 kg

DRUGS (9)
  1. MORPHINE [Suspect]
     Indication: MUSCULOSKELETAL PAIN
     Route: 048
     Dates: end: 20120301
  2. FENTANYL CITRATE [Suspect]
     Indication: MUSCULOSKELETAL PAIN
     Route: 062
  3. DURAGESIC-100 [Suspect]
     Indication: MUSCULOSKELETAL PAIN
     Route: 062
  4. DURAGESIC-100 [Suspect]
     Route: 062
     Dates: start: 20120301
  5. FENTANYL-100 [Suspect]
     Route: 062
  6. DURAGESIC-100 [Suspect]
     Route: 062
     Dates: start: 20120417
  7. FENTANYL-100 [Suspect]
     Indication: MUSCULOSKELETAL PAIN
     Route: 062
  8. DURAGESIC-100 [Suspect]
     Route: 062
     Dates: start: 20120301, end: 20120301
  9. NUCYNTA [Concomitant]
     Indication: BREAKTHROUGH PAIN
     Route: 048

REACTIONS (5)
  - MUSCULOSKELETAL PAIN [None]
  - PRODUCT QUALITY ISSUE [None]
  - WRONG TECHNIQUE IN DRUG USAGE PROCESS [None]
  - DRUG INEFFECTIVE [None]
  - BREAKTHROUGH PAIN [None]
